FAERS Safety Report 7617036-X (Version None)
Quarter: 2011Q3

REPORT INFORMATION
  Report Type: 
  Country: None (occurrence: None)
  Receive Date: 20110718
  Receipt Date: 20081017
  Transmission Date: 20111222
  Serious: Yes (Death, Other)
  Sender: FDA-Public Use
  Company Number: US-BAYER-200836308NA

PATIENT
  Age: 73 Year
  Sex: Female
  Weight: 74 kg

DRUGS (24)
  1. HYDROCHLOROTHIAZIDE [Concomitant]
     Dosage: 12.5 MG, QD
     Route: 048
  2. NITROGLYCERIN [Concomitant]
     Dosage: 50MG/250ML DRIP RATE
     Route: 042
     Dates: start: 20051129, end: 20051129
  3. EPINEPHRINE [Concomitant]
     Dosage: 4MG/250ML DRIP RATE
     Route: 042
     Dates: start: 20051129, end: 20051129
  4. HEPARIN [Concomitant]
     Dosage: 40,000/STAT DOSE
     Route: 042
     Dates: start: 20051129, end: 20051129
  5. PHENYLEPHRINE HCL [Concomitant]
     Dosage: 20MG/500ML DRIP RATE
     Route: 042
     Dates: start: 20051129, end: 20051129
  6. CARDIZEM [Concomitant]
     Dosage: 180 MG, QD
     Route: 048
  7. INSULIN [Concomitant]
     Dosage: UNK
     Route: 042
     Dates: start: 20051129, end: 20051130
  8. VANCOMYCIN [Concomitant]
     Dosage: 1 G, UNK
     Route: 042
     Dates: start: 20051129, end: 20051129
  9. TRASYLOL [Suspect]
     Dosage: 200 ML, LOADING DOSE
     Route: 042
     Dates: start: 20051129, end: 20051129
  10. LIPITOR [Concomitant]
     Dosage: 20 MG, QD
  11. SYNTHROID [Concomitant]
     Dosage: 50 MCG, QD
     Route: 048
  12. FENTANYL-100 [Concomitant]
     Dosage: UNK
     Route: 042
     Dates: start: 20051129, end: 20051129
  13. PROTAMINE SULFATE [Concomitant]
     Dosage: 350 MG, UNK
     Route: 042
     Dates: start: 20051129, end: 20051129
  14. TRASYLOL [Suspect]
     Indication: PRODUCT USED FOR UNKNOWN INDICATION
     Dosage: 1 ML, ONCE
     Route: 042
     Dates: start: 20051129, end: 20051129
  15. NIPRIDE [Concomitant]
     Dosage: UNK
     Route: 042
     Dates: end: 20051129
  16. VERSED [Concomitant]
     Dosage: UNK
     Route: 042
     Dates: start: 20051129, end: 20051129
  17. RED BLOOD CELLS [Concomitant]
     Dosage: 2 U
     Route: 042
  18. TRASYLOL [Suspect]
     Dosage: 50 ML/HOUR INFUSION
     Route: 042
     Dates: start: 20051129, end: 20051129
  19. NITROGLYCERIN [Concomitant]
     Dosage: 0.3 MG, QD
     Route: 061
  20. CONTRAST MEDIA [Concomitant]
     Indication: CATHETERISATION CARDIAC
     Dosage: 57 CC
     Dates: start: 20051123
  21. AVANDIA [Concomitant]
     Dosage: 8 MG, QD
     Route: 048
  22. DEMEROL [Concomitant]
     Dosage: UNK
     Route: 042
     Dates: start: 20051129, end: 20051129
  23. ARICEPT [Concomitant]
     Dosage: 10 MG, QD
     Route: 048
  24. ACETYLSALICYLIC ACID SRT [Concomitant]
     Dosage: 81 MG, QD
     Route: 048

REACTIONS (11)
  - MULTI-ORGAN FAILURE [None]
  - EMOTIONAL DISTRESS [None]
  - RENAL IMPAIRMENT [None]
  - PAIN [None]
  - RENAL FAILURE [None]
  - RENAL INJURY [None]
  - FEAR [None]
  - ANXIETY [None]
  - DEATH [None]
  - STRESS [None]
  - UNEVALUABLE EVENT [None]
